FAERS Safety Report 20716042 (Version 1)
Quarter: 2022Q2

REPORT INFORMATION
  Report Type: Report from Study
  Country: UA (occurrence: UA)
  Receive Date: 20220415
  Receipt Date: 20220415
  Transmission Date: 20220721
  Serious: Yes (Hospitalization, Other)
  Sender: FDA-Public Use
  Company Number: UA-CELGENE-UKR-20200407377

PATIENT
  Age: 25 Year
  Sex: Female
  Weight: 47 kg

DRUGS (17)
  1. DROSPIRENONE\ETHINYL ESTRADIOL [Suspect]
     Active Substance: DROSPIRENONE\ETHINYL ESTRADIOL
     Indication: Contraception
     Dosage: DAILY DOSE : 1 TABLET?UNIT DOSE : 1 TABLET?1 TABLET
     Route: 048
     Dates: start: 20190518
  2. DROTAVERINE HYDROCHLORIDE [Concomitant]
     Active Substance: DROTAVERINE HYDROCHLORIDE
     Indication: Colitis ulcerative
     Dosage: FREQUENCY TEXT: AS NEEDED
     Route: 048
     Dates: start: 20170808
  3. Salofalk [Concomitant]
     Indication: Colitis ulcerative
     Dosage: 1000 MILLIGRAM
     Route: 048
     Dates: start: 20180731, end: 20181117
  4. Salofalk [Concomitant]
     Dosage: 2 GRAM
     Route: 048
     Dates: start: 20181118
  5. espuzin [Concomitant]
     Indication: Colitis ulcerative
     Dosage: FREQUENCY TEXT: AS NEEDED
     Route: 048
     Dates: start: 20180626
  6. CYCLODYNON [Concomitant]
     Indication: Ovarian cyst
     Dosage: DAILY DOSE : 1 TABLET?UNIT DOSE : 1 TABLET?1 TABLET
     Route: 048
     Dates: start: 20151125, end: 20200327
  7. PROGESTERONE [Concomitant]
     Active Substance: PROGESTERONE
     Indication: Hyperprolactinaemia
     Dosage: 2.5 GRAM
     Route: 061
     Dates: start: 20200130, end: 20200228
  8. myophilic [Concomitant]
     Indication: Ovarian cyst
     Dosage: 1 SATCHET
     Route: 048
     Dates: start: 20200130, end: 20200228
  9. Emfetal [Concomitant]
     Indication: Hyperprolactinaemia
     Dosage: 1700 MILLIGRAM
     Route: 048
     Dates: start: 20200130, end: 2020
  10. MOVIPREP [Concomitant]
     Active Substance: ASCORBIC ACID\POLYETHYLENE GLYCOL 3350\POTASSIUM CHLORIDE\SODIUM ASCORBATE\SODIUM CHLORIDE\SODIUM SU
     Indication: Endoscopy
     Dosage: DAILY DOSE : 4 ?UNIT DOSE : 2 ?2 SATCHETS
     Route: 048
     Dates: start: 20200304, end: 20200304
  11. RENALGAN [Concomitant]
     Indication: Endoscopy
     Dosage: DAILY DOSE : 4 ?UNIT DOSE : 2 ?2 SATCHETS
     Route: 030
     Dates: start: 20200305, end: 20200305
  12. PAPAVERINE [Concomitant]
     Active Substance: PAPAVERINE
     Indication: Colitis ulcerative
     Dosage: FREQUENCY TEXT: AS NEEDED
     Route: 030
     Dates: start: 20200428
  13. ENTEROGERMINA forte [Concomitant]
     Indication: Colitis ulcerative
     Dosage: 1 AMP
     Route: 030
     Dates: start: 20200424, end: 20200512
  14. salofalk SUPPOSITORIUM [Concomitant]
     Indication: Colitis ulcerative
     Dosage: 500 MILLIGRAM
     Route: 054
     Dates: start: 20200428, end: 20200507
  15. salofalk SUPPOSITORIUM [Concomitant]
     Dosage: FREQUENCY TEXT: PRN?1000 MILLIGRAM
     Route: 054
     Dates: start: 20200508
  16. salofalk SUPPOSITORIUM [Concomitant]
     Dosage: 1 GRAM
     Route: 054
     Dates: start: 20200522, end: 202006
  17. Cuplaton [Concomitant]
     Indication: Colitis ulcerative
     Dosage: FREQUENCY TEXT: AS NEEDED?5 DROPS
     Route: 048
     Dates: start: 20200522, end: 202006

REACTIONS (4)
  - Abortion threatened [Recovered/Resolved]
  - Maternal exposure during pregnancy [Recovered/Resolved]
  - Pregnancy on oral contraceptive [Unknown]
  - Live birth [Unknown]

NARRATIVE: CASE EVENT DATE: 20200317
